FAERS Safety Report 10189437 (Version 3)
Quarter: 2014Q2

REPORT INFORMATION
  Report Type: Spontaneous
  Country: US (occurrence: US)
  Receive Date: 20140522
  Receipt Date: 20140523
  Transmission Date: 20141212
  Serious: No
  Sender: FDA-Public Use
  Company Number: US-ASTRAZENECA-2013SE67626

PATIENT
  Age: 47 Year
  Sex: Female
  Weight: 49.9 kg

DRUGS (4)
  1. PULMICORT FLEXHALER [Suspect]
     Indication: ASTHMA
     Route: 055
     Dates: start: 2006
  2. PULMICORT FLEXHALER [Suspect]
     Indication: ASTHMA
     Dosage: 1 INHALATION DAILY
     Route: 055
  3. PULMICORT FLEXHALER [Suspect]
     Indication: ASTHMA
     Route: 055
     Dates: start: 201307
  4. UNSPECIFIED INHALER [Concomitant]

REACTIONS (6)
  - Dyspnoea [Unknown]
  - Malaise [Unknown]
  - Cough [Unknown]
  - Insomnia [Unknown]
  - Intentional product misuse [Unknown]
  - Drug dose omission [Unknown]
